FAERS Safety Report 6817990-X (Version None)
Quarter: 2010Q3

REPORT INFORMATION
  Report Type: 
  Country: None (occurrence: None)
  Receive Date: 20100706
  Receipt Date: 20100623
  Transmission Date: 20110219
  Serious: Yes (Death, Hospitalization, Other)
  Sender: FDA-Public Use
  Company Number: US-AMGEN-QUU410432

PATIENT
  Sex: Male
  Weight: 71.4 kg

DRUGS (37)
  1. NPLATE [Suspect]
     Indication: IDIOPATHIC THROMBOCYTOPENIC PURPURA
     Route: 058
     Dates: start: 20090723, end: 20090824
  2. MAGNESIUM [Concomitant]
     Route: 048
     Dates: end: 20090101
  3. CORTICOSTEROIDS [Concomitant]
     Dates: start: 20090714
  4. RITUXIMAB [Concomitant]
     Route: 042
     Dates: start: 20090723
  5. DILAUDID [Concomitant]
     Dates: end: 20091118
  6. VANCOMYCIN [Concomitant]
     Dates: end: 20091117
  7. ARANESP [Concomitant]
     Route: 058
     Dates: end: 20091116
  8. DELTASONE [Concomitant]
     Dates: end: 20091118
  9. ALDACTONE [Concomitant]
     Route: 048
     Dates: end: 20090101
  10. EPINEPHRINE [Concomitant]
     Route: 058
     Dates: start: 20090701
  11. PROTONIX [Concomitant]
     Dates: end: 20091118
  12. SOLU-CORTEF [Concomitant]
     Route: 042
  13. DEMEROL [Concomitant]
     Route: 042
  14. TYLENOL [Concomitant]
     Route: 048
  15. AMICAR [Concomitant]
  16. PROGRAF [Concomitant]
  17. LIORESAL [Concomitant]
     Route: 048
  18. LEVAQUIN [Concomitant]
     Route: 042
     Dates: end: 20090101
  19. FERRLECIT [Concomitant]
     Route: 042
  20. EPOGEN [Concomitant]
     Route: 058
     Dates: end: 20090101
  21. ACTIGALL [Concomitant]
     Route: 048
     Dates: end: 20091118
  22. REGLAN [Concomitant]
     Route: 048
  23. NARCAN [Concomitant]
  24. ROXICODONE [Concomitant]
  25. SANTYL [Concomitant]
  26. COLACE [Concomitant]
  27. LACTULOSE [Concomitant]
  28. MEGACE [Concomitant]
  29. MIDODRINE HYDROCHLORIDE [Concomitant]
  30. MULTIPLE VITAMIN [Concomitant]
  31. MEPHYTON [Concomitant]
  32. MYLICON [Concomitant]
  33. ZINC SULFATE [Concomitant]
     Dates: end: 20090101
  34. DULCOLAX [Concomitant]
  35. ZOFRAN [Concomitant]
     Dates: end: 20091119
  36. FOLIC ACID [Concomitant]
     Dates: end: 20090101
  37. VITAMIN C [Concomitant]
     Dates: end: 20090101

REACTIONS (38)
  - ABDOMINAL PAIN [None]
  - ANAEMIA [None]
  - ANORECTAL VARICES HAEMORRHAGE [None]
  - ASCITES [None]
  - ASTHENIA [None]
  - BLOOD LACTIC ACID INCREASED [None]
  - CLOSTRIDIUM DIFFICILE COLITIS [None]
  - COAGULOPATHY [None]
  - CONTUSION [None]
  - DECUBITUS ULCER [None]
  - DEPRESSION [None]
  - ENDOCARDITIS BACTERIAL [None]
  - EPSTEIN-BARR VIRUS ASSOCIATED LYMPHOPROLIFERATIVE DISORDER [None]
  - FAILURE TO THRIVE [None]
  - FUNGAEMIA [None]
  - GASTROINTESTINAL DISORDER [None]
  - GENERALISED OEDEMA [None]
  - HAEMORRHAGE [None]
  - HEPATIC CIRRHOSIS [None]
  - HEPATIC FAILURE [None]
  - HYPOTENSION [None]
  - INSOMNIA [None]
  - LEUKOCYTOSIS [None]
  - LUNG CONSOLIDATION [None]
  - LYMPHADENOPATHY [None]
  - MALNUTRITION [None]
  - NAUSEA [None]
  - OCULAR ICTERUS [None]
  - PLEURAL EFFUSION [None]
  - PORTAL HYPERTENSION [None]
  - PORTAL HYPERTENSIVE GASTROPATHY [None]
  - PURPURA [None]
  - PYREXIA [None]
  - RENAL FAILURE CHRONIC [None]
  - SEPSIS [None]
  - TACHYCARDIA [None]
  - TACHYPNOEA [None]
  - VARICES OESOPHAGEAL [None]
